FAERS Safety Report 17290878 (Version 1)
Quarter: 2020Q1

REPORT INFORMATION
  Report Type: Spontaneous
  Country: EC (occurrence: EC)
  Receive Date: 20200121
  Receipt Date: 20200121
  Transmission Date: 20200409
  Serious: Yes (Other)
  Sender: FDA-Public Use
  Company Number: EC-BAYER-2019-183365

PATIENT
  Age: 25 Year
  Sex: Female
  Weight: 51.7 kg

DRUGS (2)
  1. MIRENA [Suspect]
     Active Substance: LEVONORGESTREL
     Indication: CONTRACEPTION
     Dosage: 20 MCG/24HR, CONT
     Route: 015
  2. MIRENA [Suspect]
     Active Substance: LEVONORGESTREL

REACTIONS (3)
  - Embedded device [Recovered/Resolved]
  - Device issue [Recovered/Resolved]
  - Acne [None]

NARRATIVE: CASE EVENT DATE: 20190916
